FAERS Safety Report 4920775-2 (Version None)
Quarter: 2006Q1

REPORT INFORMATION
  Report Type: 
  Country: None (occurrence: None)
  Receive Date: 20060216
  Receipt Date: 20060209
  Transmission Date: 20060701
  Serious: Yes (Other)
  Sender: FDA-Public Use
  Company Number: 2006016631

PATIENT
  Age: 70 Year
  Sex: Female
  Weight: 60 kg

DRUGS (3)
  1. LYRICA [Suspect]
     Indication: NEURALGIA
     Dosage: 150 MG (75 MG, 2 IN 1 D), ORAL
     Route: 048
     Dates: start: 20051101
  2. OXYCONTIN [Concomitant]
  3. TRIPTYL (AMITRIPTYLINE HYDROCHLORIDE) [Concomitant]

REACTIONS (4)
  - AGGRESSION [None]
  - DELUSION [None]
  - DYSARTHRIA [None]
  - URINARY TRACT INFECTION [None]
